FAERS Safety Report 9249245 (Version 1)
Quarter: 2013Q2

REPORT INFORMATION
  Report Type: Spontaneous
  Country: US (occurrence: US)
  Receive Date: 20130422
  Receipt Date: 20130422
  Transmission Date: 20140414
  Serious: Yes (Other)
  Sender: FDA-Public Use
  Company Number: US-RB-050279-13

PATIENT
  Age: 27 Year
  Sex: Female

DRUGS (3)
  1. SUBUTEX [Suspect]
     Indication: DRUG DEPENDENCE
     Route: 060
     Dates: start: 201302
  2. OPIOIDS [Suspect]
     Indication: PRODUCT USED FOR UNKNOWN INDICATION
     Dosage: DOSING DETAILS UNKNOWN
     Route: 065
     Dates: start: 2010, end: 201302
  3. PRENATAL VITAMINS [Concomitant]
     Indication: MEDICAL DIET
     Dosage: DOSING DETAILS UNKNOWN
     Route: 065
     Dates: start: 201302

REACTIONS (2)
  - Exposure during pregnancy [Not Recovered/Not Resolved]
  - Placenta praevia [Not Recovered/Not Resolved]
